FAERS Safety Report 16637674 (Version 1)
Quarter: 2019Q3

REPORT INFORMATION
  Report Type: Spontaneous
  Country: US (occurrence: US)
  Receive Date: 20190726
  Receipt Date: 20190726
  Transmission Date: 20191004
  Serious: Yes (Life-Threatening, Other)
  Sender: FDA-Public Use
  Company Number: None

PATIENT
  Age: 59 Year
  Sex: Male
  Weight: 67.5 kg

DRUGS (1)
  1. CINACALCET HYDROCHLORIDE ORAL TABLET (GENERIC SENSIPAR0 [Suspect]
     Active Substance: CINACALCET HYDROCHLORIDE
     Indication: PRODUCT USED FOR UNKNOWN INDICATION
     Dosage: ?          QUANTITY:1 TABLET(S);?
     Route: 048

REACTIONS (4)
  - Chest pain [None]
  - Depression [None]
  - Product substitution issue [None]
  - Decreased appetite [None]

NARRATIVE: CASE EVENT DATE: 20190601
